FAERS Safety Report 10578631 (Version 2)
Quarter: 2014Q4

REPORT INFORMATION
  Report Type: Report from Study
  Country: AR (occurrence: AR)
  Receive Date: 20141112
  Receipt Date: 20141113
  Transmission Date: 20150529
  Serious: Yes (Death, Hospitalization)
  Sender: FDA-Public Use
  Company Number: PHHY2014AR147521

PATIENT
  Age: 84 Year
  Sex: Female

DRUGS (2)
  1. DIOVAN [Suspect]
     Active Substance: VALSARTAN
     Indication: HYPERTENSION
     Dosage: 1 DF (80 MG), QD
     Route: 048
     Dates: end: 2012
  2. DIOVAN D [Suspect]
     Active Substance: HYDROCHLOROTHIAZIDE\VALSARTAN
     Indication: HYPERTENSION
     Dosage: 1 DF (80 MG, AS REPORTED), QD
     Route: 048
     Dates: end: 2012

REACTIONS (4)
  - Fall [Unknown]
  - Hypokinesia [Unknown]
  - Exercise tolerance decreased [Unknown]
  - Multi-organ failure [Fatal]

NARRATIVE: CASE EVENT DATE: 2012
